FAERS Safety Report 7466066-X (Version None)
Quarter: 2011Q2

REPORT INFORMATION
  Report Type: 
  Country: None (occurrence: None)
  Receive Date: 20110509
  Receipt Date: 20100626
  Transmission Date: 20111010
  Serious: No
  Sender: FDA-Public Use
  Company Number: US-ALEXION-A201000743

PATIENT
  Sex: Female

DRUGS (5)
  1. MACROBID [Concomitant]
     Dosage: 100 MG, PRN
     Route: 048
  2. IMITREX [Concomitant]
     Indication: MIGRAINE
     Dosage: 50 MG, PRN
     Route: 048
  3. SOLIRIS [Suspect]
     Dosage: 900 MG, Q2W
     Route: 042
     Dates: start: 20091106
  4. NORCO [Concomitant]
     Indication: MYALGIA
     Dosage: UNK
     Route: 048
  5. SOLIRIS [Suspect]
     Indication: PAROXYSMAL NOCTURNAL HAEMOGLOBINURIA
     Dosage: 600 MG, QW
     Route: 042
     Dates: start: 20091009, end: 20091030

REACTIONS (1)
  - FLANK PAIN [None]
